FAERS Safety Report 21211761 (Version 1)
Quarter: 2022Q3

REPORT INFORMATION
  Report Type: Spontaneous
  Country: US (occurrence: US)
  Receive Date: 20220815
  Receipt Date: 20220815
  Transmission Date: 20221026
  Serious: No
  Sender: FDA-Public Use
  Company Number: US-GALDERMA-US2022010131

PATIENT

DRUGS (5)
  1. PROACTIV MD ADAPALENE ACNE TREATMENT [Suspect]
     Active Substance: ADAPALENE
     Indication: Product used for unknown indication
     Dosage: 1 DOSAGE FORM, QD
     Route: 061
     Dates: start: 20220714, end: 20220716
  2. Proactiv MD Ultra Gentle Cleanser [Concomitant]
     Indication: Product used for unknown indication
     Dosage: 1 DOSAGE FORM, BID
     Route: 061
     Dates: start: 20220714, end: 20220716
  3. Proactiv MD Ultra Hydrating Moisturizer [Concomitant]
     Indication: Product used for unknown indication
     Dosage: 1 DOSAGE FORM, BID
     Route: 061
     Dates: start: 20220714, end: 20220716
  4. Proactiv Post Acne Dark Mark Relief [Concomitant]
     Indication: Product used for unknown indication
     Dosage: 1 DOSAGE FORM, BID
     Route: 061
     Dates: start: 20220714, end: 20220716
  5. Proactiv Post Acne Scar Gel [Concomitant]
     Indication: Product used for unknown indication
     Dosage: 1 DOSAGE FORM, BID
     Route: 061
     Dates: start: 20220714, end: 20220716

REACTIONS (4)
  - Hypersensitivity [Not Recovered/Not Resolved]
  - Urticaria [Not Recovered/Not Resolved]
  - Eye swelling [Not Recovered/Not Resolved]
  - Rash [Not Recovered/Not Resolved]

NARRATIVE: CASE EVENT DATE: 20220716
